FAERS Safety Report 13502683 (Version 1)
Quarter: 2017Q2

REPORT INFORMATION
  Report Type: Report from Study
  Country: US (occurrence: US)
  Receive Date: 20170502
  Receipt Date: 20170502
  Transmission Date: 20170830
  Serious: Yes (Other)
  Sender: FDA-Public Use
  Company Number: US-AMGEN-USASL2017063976

PATIENT
  Age: 57 Year
  Sex: Female

DRUGS (4)
  1. NORTRIPTYLINE [Concomitant]
     Active Substance: NORTRIPTYLINE
     Dosage: UNK
  2. PROLIA [Suspect]
     Active Substance: DENOSUMAB
     Indication: OSTEOPOROSIS
     Dosage: UNK
     Route: 058
  3. PROLIA [Suspect]
     Active Substance: DENOSUMAB
     Dosage: UNK
     Route: 065
     Dates: start: 20170411
  4. ALPRAZOLAM. [Concomitant]
     Active Substance: ALPRAZOLAM
     Dosage: UNK UNK, BID

REACTIONS (12)
  - Rib fracture [Unknown]
  - Influenza like illness [Unknown]
  - Chest injury [Unknown]
  - Liver function test increased [Unknown]
  - Blood sodium abnormal [Unknown]
  - Swelling face [Not Recovered/Not Resolved]
  - Foot fracture [Unknown]
  - Headache [Unknown]
  - Dehydration [Unknown]
  - Hyponatraemia [Unknown]
  - Injection site pain [Unknown]
  - Incorrect route of drug administration [Unknown]

NARRATIVE: CASE EVENT DATE: 201704
